FAERS Safety Report 4978021-X (Version None)
Quarter: 2006Q2

REPORT INFORMATION
  Report Type: 
  Country: None (occurrence: None)
  Receive Date: 20060420
  Receipt Date: 20050825
  Transmission Date: 20061013
  Serious: Yes (Hospitalization)
  Sender: FDA-Public Use
  Company Number: US-MERCK-0508USA04260

PATIENT
  Age: 90 Year
  Sex: Female
  Weight: 70 kg

DRUGS (1)
  1. VIOXX [Suspect]
     Indication: PAIN IN EXTREMITY
     Route: 048
     Dates: start: 20040907, end: 20041010

REACTIONS (3)
  - CEREBROVASCULAR ACCIDENT [None]
  - DEPRESSION [None]
  - FATIGUE [None]
